FAERS Safety Report 6085614-8 (Version None)
Quarter: 2009Q1

REPORT INFORMATION
  Report Type: 
  Country: None (occurrence: None)
  Receive Date: 20090217
  Receipt Date: 20081119
  Transmission Date: 20090719
  Serious: Yes (Other)
  Sender: FDA-Public Use
  Company Number: 597941

PATIENT

DRUGS (2)
  1. TORADOL [Suspect]
     Indication: DRUG USE FOR UNKNOWN INDICATION
  2. LOVENOX [Suspect]
     Indication: DRUG USE FOR UNKNOWN INDICATION
     Dosage: SUBCUTANEOUS
     Route: 058

REACTIONS (1)
  - RETROPERITONEAL HAEMORRHAGE [None]
